FAERS Safety Report 14169180 (Version 2)
Quarter: 2018Q2

REPORT INFORMATION
  Report Type: Spontaneous
  Country: RU (occurrence: RU)
  Receive Date: 20171108
  Receipt Date: 20180503
  Transmission Date: 20180711
  Serious: Yes (Hospitalization)
  Sender: FDA-Public Use
  Company Number: RU-ASTRAZENECA-2017SF12537

PATIENT
  Age: 77 Year
  Sex: Male
  Weight: 90 kg

DRUGS (9)
  1. METOPROLOL. [Concomitant]
     Active Substance: METOPROLOL
  2. PRESTARIUM A [Concomitant]
     Active Substance: PERINDOPRIL ARGININE
  3. TRIMETAZIDINE [Concomitant]
     Active Substance: TRIMETAZIDINE
  4. BRILINTA [Suspect]
     Active Substance: TICAGRELOR
     Indication: MYOCARDIAL INFARCTION
     Route: 048
     Dates: start: 201704
  5. ATORVASTATIN [Concomitant]
     Active Substance: ATORVASTATIN
  6. PERINDOPRIL [Concomitant]
     Active Substance: PERINDOPRIL
  7. CARDIOMAGNYL [Concomitant]
     Active Substance: ASPIRIN\MAGNESIUM HYDROXIDE
  8. ESOMEPRAZOLE [Concomitant]
     Active Substance: ESOMEPRAZOLE
  9. BRILINTA [Suspect]
     Active Substance: TICAGRELOR
     Indication: STENT PLACEMENT
     Route: 048
     Dates: start: 201704

REACTIONS (11)
  - Pancreatitis [Recovered/Resolved]
  - Product use issue [Not Recovered/Not Resolved]
  - Hypertensive crisis [Unknown]
  - Calculus urinary [Unknown]
  - Cholelithiasis [Unknown]
  - Off label use [Not Recovered/Not Resolved]
  - Bile duct stone [Unknown]
  - Nephrolithiasis [Unknown]
  - Alanine aminotransferase increased [Unknown]
  - Aspartate aminotransferase increased [Unknown]
  - Contusion [Not Recovered/Not Resolved]

NARRATIVE: CASE EVENT DATE: 201703
